FAERS Safety Report 17998054 (Version 2)
Quarter: 2020Q3

REPORT INFORMATION
  Report Type: Report from Study
  Country: US (occurrence: US)
  Receive Date: 20200708
  Receipt Date: 20200710
  Transmission Date: 20201103
  Serious: No
  Sender: FDA-Public Use
  Company Number: NVSC2020US192487

PATIENT
  Sex: Male

DRUGS (1)
  1. ENTRESTO [Suspect]
     Active Substance: SACUBITRIL\VALSARTAN
     Indication: CARDIAC FAILURE
     Dosage: UNK UNK, BID
     Route: 048
     Dates: start: 202006

REACTIONS (5)
  - Hyperglycaemia [Unknown]
  - Anxiety [Unknown]
  - Hypoaesthesia [Unknown]
  - Skin exfoliation [Unknown]
  - Paraesthesia [Unknown]
